FAERS Safety Report 9482124 (Version 2)
Quarter: 2013Q3

REPORT INFORMATION
  Report Type: Spontaneous
  Country: NO (occurrence: NO)
  Receive Date: 20130828
  Receipt Date: 20130828
  Transmission Date: 20140515
  Serious: Yes (Other)
  Sender: FDA-Public Use
  Company Number: PHHY2013NO091628

PATIENT
  Sex: 0

DRUGS (4)
  1. TRILEPTAL [Suspect]
     Dosage: 1 ML, BID
     Route: 048
  2. EPANUTIN [Concomitant]
     Dosage: UNK UKN, UNK
  3. EPANUTIN [Concomitant]
     Dosage: DOSE INCREASED
  4. ORFIRIL [Concomitant]
     Dosage: UNK UKN, UNK

REACTIONS (2)
  - Convulsion [Recovered/Resolved]
  - Expired drug administered [Unknown]
